FAERS Safety Report 11855378 (Version 1)
Quarter: 2015Q4

REPORT INFORMATION
  Report Type: Spontaneous
  Country: KR (occurrence: KR)
  Receive Date: 20151221
  Receipt Date: 20151221
  Transmission Date: 20160305
  Serious: Yes (Other)
  Sender: FDA-Public Use
  Company Number: KR-MYLANLABS-2015M1045725

PATIENT

DRUGS (5)
  1. ALPRAZOLAM. [Concomitant]
     Active Substance: ALPRAZOLAM
     Dosage: 0.25MG
     Route: 065
  2. IMIPRAMINE [Concomitant]
     Active Substance: IMIPRAMINE
     Dosage: 12.5MG
     Route: 065
  3. TIANEPTINE [Concomitant]
     Active Substance: TIANEPTINE
     Dosage: 12.5MG
     Route: 065
  4. BUPROPION. [Suspect]
     Active Substance: BUPROPION
     Indication: PRODUCT USED FOR UNKNOWN INDICATION
     Dosage: 300MG
     Route: 065
  5. DIAZEPAM. [Concomitant]
     Active Substance: DIAZEPAM
     Dosage: 2MG
     Route: 065

REACTIONS (1)
  - Parkinsonism [Recovered/Resolved]
